FAERS Safety Report 6762948-2 (Version None)
Quarter: 2010Q2

REPORT INFORMATION
  Report Type: 
  Country: None (occurrence: None)
  Receive Date: 20100608
  Receipt Date: 20100608
  Transmission Date: 20101027
  Serious: Yes (Other)
  Sender: FDA-Public Use
  Company Number: None

PATIENT
  Age: 11 Year
  Sex: Female
  Weight: 26.7622 kg

DRUGS (2)
  1. LACTAID FAST ACT MCNEIL NUTRITIONALS [Suspect]
     Indication: LACTOSE INTOLERANCE
     Dosage: 1 CHEWABLE TABLET ONE TABLET PO, ONE EVENING
     Route: 048
     Dates: start: 20100507, end: 20100507
  2. LACTAID FAST ACT MCNEIL NUTRITIONALS [Suspect]
     Indication: LACTOSE INTOLERANCE
     Dosage: 1 CHEWABLE TABLET ONE TABLET PO, ONE EVENING
     Route: 048
     Dates: start: 20100521, end: 20100521

REACTIONS (1)
  - VOMITING [None]
